FAERS Safety Report 6672471-1 (Version None)
Quarter: 2010Q2

REPORT INFORMATION
  Report Type: 
  Country: None (occurrence: None)
  Receive Date: 20100408
  Receipt Date: 20100406
  Transmission Date: 20101027
  Serious: Yes (Hospitalization)
  Sender: FDA-Public Use
  Company Number: US-PERRIGO-10US008468

PATIENT
  Sex: Male
  Weight: 83.447 kg

DRUGS (1)
  1. DIPHENHYDRAMINE HCL [Suspect]
     Indication: SEASONAL ALLERGY
     Dosage: 75 MG, SINGLE
     Route: 048
     Dates: start: 20100331, end: 20100331

REACTIONS (4)
  - BLOOD PRESSURE INCREASED [None]
  - DIZZINESS [None]
  - HEART RATE INCREASED [None]
  - OVERDOSE [None]
